FAERS Safety Report 19061984 (Version 2)
Quarter: 2022Q4

REPORT INFORMATION
  Report Type: Report from Study
  Country: US (occurrence: US)
  Receive Date: 20210325
  Receipt Date: 20221208
  Transmission Date: 20230112
  Serious: No
  Sender: FDA-Public Use
  Company Number: US-ACADIA PHARMACEUTICALS INC.-ACA-2021-PIM-000830

PATIENT
  Age: 85 Year
  Sex: Male

DRUGS (20)
  1. NUPLAZID [Suspect]
     Active Substance: PIMAVANSERIN TARTRATE
     Indication: Parkinson^s disease psychosis
     Dosage: 34 MILLIGRAM, QD, NIGHTLY
     Route: 048
  2. NUPLAZID [Suspect]
     Active Substance: PIMAVANSERIN TARTRATE
     Indication: Hallucination
     Dosage: 34 MILLIGRAM, QD, NIGHTLY
     Route: 048
     Dates: start: 20221024, end: 202211
  3. NUPLAZID [Suspect]
     Active Substance: PIMAVANSERIN TARTRATE
     Indication: Delusion
  4. RYTARY [Suspect]
     Active Substance: CARBIDOPA\LEVODOPA
     Dosage: UNK
  5. ZYLOPRIM [Concomitant]
     Active Substance: ALLOPURINOL
     Dosage: 100 MILLIGRAM, DAILY
     Route: 048
  6. ELIQUIS [Concomitant]
     Active Substance: APIXABAN
     Dosage: 2.5 MG, TWO TIMES DAILY
     Route: 048
     Dates: start: 20210623
  7. COREG [Concomitant]
     Active Substance: CARVEDILOL
     Dosage: 3.125 MG, 2 TIMES DAILY WITH MEALS
     Route: 048
     Dates: start: 20190811
  8. PLAVIX [Concomitant]
     Active Substance: CLOPIDOGREL BISULFATE
     Dosage: 75 MILLIGRAM, ONCE DAILY
     Route: 048
     Dates: start: 20190813
  9. VITAMIN B12 [Concomitant]
     Active Substance: CYANOCOBALAMIN
     Dosage: 1 TABLET, DAILY
     Route: 048
     Dates: start: 20190813
  10. FERROUS FUMARATE;IRON POLYSACCHARIDE COMPLEX [Concomitant]
     Dosage: 1 TABLET, DAILY
     Route: 048
  11. PRINIVIL [Concomitant]
     Active Substance: LISINOPRIL
     Dosage: 5 MILLIGRAM, DAILY
     Route: 048
  12. MELATONIN [Concomitant]
     Active Substance: MELATONIN
     Dosage: 10 MILLIGRAM, 1 TABLET NIGHTLY AT BED TIME
     Route: 048
     Dates: start: 20190912
  13. GLUCOPHAGE XR [Concomitant]
     Active Substance: METFORMIN HYDROCHLORIDE
     Dosage: 500
     Dates: start: 20190610
  14. PROTONIX [Concomitant]
     Active Substance: PANTOPRAZOLE SODIUM
     Dosage: 40 MILLIGRAM, 1 TABLET EVERY 12 HOURS
     Route: 048
     Dates: start: 20190715
  15. AZILECT [Concomitant]
     Active Substance: RASAGILINE MESYLATE
     Dosage: 1 MILLIGRAM, 1 TABLET DAILY AT 6 AM
     Route: 048
     Dates: start: 20221024
  16. FLOMAX [Concomitant]
     Active Substance: TAMSULOSIN HYDROCHLORIDE
     Dosage: 0.4 MG
     Route: 048
     Dates: start: 20181121
  17. VITAMIN B1 [Concomitant]
     Active Substance: THIAMINE HYDROCHLORIDE
     Dosage: 100 MILLIGRAM, DAILY
     Route: 048
     Dates: start: 20181121
  18. RYTARY [Concomitant]
     Active Substance: CARBIDOPA\LEVODOPA
     Dosage: 48.75-195 MG, 1CAPSULE 4 TIMES DAILY
     Dates: start: 20221024
  19. VITAMIN C [Concomitant]
     Active Substance: ASCORBIC ACID
  20. VITAMIN B3 [Concomitant]
     Active Substance: NIACIN

REACTIONS (5)
  - Fatigue [Recovered/Resolved]
  - Asthenia [Recovered/Resolved]
  - Dysstasia [Recovered/Resolved]
  - Weight increased [Unknown]
  - Fall [Recovered/Resolved]

NARRATIVE: CASE EVENT DATE: 20221107
